FAERS Safety Report 6468446-8 (Version None)
Quarter: 2009Q4

REPORT INFORMATION
  Report Type: 
  Country: None (occurrence: None)
  Receive Date: 20091202
  Receipt Date: 20091202
  Transmission Date: 20100525
  Serious: Yes (Death)
  Sender: FDA-Public Use
  Company Number: None

PATIENT
  Age: 24 Year
  Sex: Male

DRUGS (2)
  1. DOXEPIN HCL [Suspect]
     Indication: POST-TRAUMATIC STRESS DISORDER
     Dosage: DOXEPIN 250MG QD PO
     Route: 048
     Dates: start: 20090910
  2. PAROXETINE HCL [Suspect]
     Indication: POST-TRAUMATIC STRESS DISORDER
     Dosage: PAROXETINE 60MG QD PO
     Route: 048
     Dates: start: 20090601

REACTIONS (2)
  - DRUG INTERACTION [None]
  - DRUG TOXICITY [None]
